FAERS Safety Report 8171222-1 (Version None)
Quarter: 2012Q1

REPORT INFORMATION
  Report Type: 
  Country: None (occurrence: None)
  Receive Date: 20120228
  Receipt Date: 20120216
  Transmission Date: 20120608
  Serious: Yes (Hospitalization, Other)
  Sender: FDA-Public Use
  Company Number: FR-MEDIMMUNE-MEDI-0015022

PATIENT
  Sex: Male

DRUGS (3)
  1. ESOMEPRAZOLE MAGNESIUM [Concomitant]
  2. SYNAGIS [Suspect]
     Route: 030
     Dates: start: 20111024, end: 20111209
  3. IRON [Concomitant]

REACTIONS (10)
  - VARICELLA [None]
  - PALLOR [None]
  - HYPOTHERMIA [None]
  - APNOEA [None]
  - MALAISE [None]
  - DRUG INEFFECTIVE [None]
  - OXYGEN SATURATION DECREASED [None]
  - BRADYCARDIA [None]
  - RESPIRATORY SYNCYTIAL VIRUS BRONCHIOLITIS [None]
  - HYPOTONIA [None]
